FAERS Safety Report 11172774 (Version 1)
Quarter: 2015Q2

REPORT INFORMATION
  Report Type: Spontaneous
  Country: AU (occurrence: AU)
  Receive Date: 20150608
  Receipt Date: 20150608
  Transmission Date: 20150821
  Serious: Yes (Other)
  Sender: FDA-Public Use
  Company Number: AU-BAYER-2015-279441

PATIENT
  Sex: Female

DRUGS (1)
  1. ASPRO [Suspect]
     Active Substance: ASPIRIN\SODIUM BICARBONATE
     Indication: LYMPHADENOPATHY
     Dosage: CONSUMED 2 BOX

REACTIONS (3)
  - Product use issue [None]
  - Gastrointestinal disorder [None]
  - Cerebral cyst excision [None]
